FAERS Safety Report 16430949 (Version 2)
Quarter: 2020Q3

REPORT INFORMATION
  Report Type: Report from Study
  Country: KR (occurrence: KR)
  Receive Date: 20190614
  Receipt Date: 20190826
  Transmission Date: 20201104
  Serious: Yes (Hospitalization, Other)
  Sender: FDA-Public Use
  Company Number: KR-ROCHE-2323559

PATIENT
  Age: 78 Year
  Sex: Female

DRUGS (2)
  1. ALECTINIB. [Suspect]
     Active Substance: ALECTINIB
     Indication: NON-SMALL CELL LUNG CANCER METASTATIC
     Route: 048
     Dates: start: 20180426
  2. CODAEWON FORTE [Concomitant]
     Indication: COUGH
     Route: 048
     Dates: start: 20181029, end: 20181113

REACTIONS (4)
  - Pneumonia [Recovered/Resolved]
  - Metastases to eye [Not Recovered/Not Resolved]
  - Anaemia [Recovered/Resolved]
  - Pyrexia [Recovered/Resolved]

NARRATIVE: CASE EVENT DATE: 20181022
